FAERS Safety Report 25339255 (Version 1)
Quarter: 2025Q2

REPORT INFORMATION
  Report Type: Spontaneous
  Country: US (occurrence: US)
  Receive Date: 20250521
  Receipt Date: 20250521
  Transmission Date: 20250716
  Serious: No
  Sender: ALEMBIC
  Company Number: US-ALEMBIC PHARMACUETICALS LIMITED-2025SCAL000476

PATIENT

DRUGS (1)
  1. DOCOSANOL [Suspect]
     Active Substance: DOCOSANOL
     Indication: Cheilitis
     Route: 061
     Dates: start: 20250504, end: 20250505

REACTIONS (4)
  - Oral discomfort [Not Recovered/Not Resolved]
  - Lip pain [Not Recovered/Not Resolved]
  - Thirst [Not Recovered/Not Resolved]
  - Lip swelling [Not Recovered/Not Resolved]

NARRATIVE: CASE EVENT DATE: 20250505
